APPROVED DRUG PRODUCT: CELONTIN
Active Ingredient: METHSUXIMIDE
Strength: 150MG
Dosage Form/Route: CAPSULE;ORAL
Application: N010596 | Product #007
Applicant: PARKE DAVIS DIV WARNER LAMBERT CO
Approved: Approved Prior to Jan 1, 1982 | RLD: Yes | RS: No | Type: DISCN